FAERS Safety Report 9434301 (Version 1)
Quarter: 2013Q3

REPORT INFORMATION
  Report Type: Spontaneous
  Country: US (occurrence: None)
  Receive Date: 20130731
  Receipt Date: 20130731
  Transmission Date: 20140515
  Serious: No
  Sender: FDA-Public Use
  Company Number: None

PATIENT
  Age: 51 Year
  Sex: Male

DRUGS (1)
  1. AUGMENTIN [Suspect]
     Dates: start: 20101205, end: 20101210

REACTIONS (8)
  - Drug-induced liver injury [None]
  - Hepatitis [None]
  - Fluid overload [None]
  - Bladder disorder [None]
  - Gallbladder disorder [None]
  - Ascites [None]
  - Gallbladder disorder [None]
  - Iron overload [None]
